FAERS Safety Report 4865017-1 (Version None)
Quarter: 2005Q4

REPORT INFORMATION
  Report Type: 
  Country: None (occurrence: None)
  Receive Date: 20051223
  Receipt Date: 20051129
  Transmission Date: 20060501
  Serious: Yes (Disabling, Other)
  Sender: FDA-Public Use
  Company Number: PHEH2005US13004

PATIENT
  Age: 75 Year
  Sex: Female
  Weight: 77.097 kg

DRUGS (3)
  1. MIACALCIN [Suspect]
     Indication: OSTEOPOROSIS
     Dosage: 200 IU, QD
     Dates: start: 20000101
  2. ATENOLOL [Concomitant]
     Indication: HYPERTENSION
     Dosage: 25 MG, QD
     Route: 048
  3. CALTRATE +D [Concomitant]
     Indication: OSTEOPOROSIS
     Dosage: UNK, 9QD
     Route: 048

REACTIONS (4)
  - CHOKING [None]
  - DYSPHAGIA [None]
  - OESOPHAGEAL ACHALASIA [None]
  - THYROID NEOPLASM [None]
